FAERS Safety Report 12010626 (Version 1)
Quarter: 2016Q1

REPORT INFORMATION
  Report Type: Spontaneous
  Country: PR (occurrence: US)
  Receive Date: 20160205
  Receipt Date: 20160205
  Transmission Date: 20160526
  Serious: No
  Sender: FDA-Public Use
  Company Number: PR-ELI_LILLY_AND_COMPANY-US201602000531

PATIENT
  Age: 28 Year
  Sex: Male

DRUGS (2)
  1. STRATTERA [Suspect]
     Active Substance: ATOMOXETINE HYDROCHLORIDE
     Indication: ATTENTION DEFICIT/HYPERACTIVITY DISORDER
     Dosage: 1 DF, QD (A FEW MONTHS AGO; STARTER PACK ONE A DAY PO)
     Route: 048
     Dates: start: 2015
  2. STRATTERA [Suspect]
     Active Substance: ATOMOXETINE HYDROCHLORIDE
     Dosage: 80 MG, QD (TARGET DOSE)
     Route: 048

REACTIONS (5)
  - Chest pain [Unknown]
  - Personality disorder [Unknown]
  - Impulsive behaviour [Unknown]
  - Mood swings [Unknown]
  - Heart rate increased [Unknown]
